FAERS Safety Report 12717156 (Version 1)
Quarter: 2016Q3

REPORT INFORMATION
  Report Type: Spontaneous
  Country: RS (occurrence: RS)
  Receive Date: 20160906
  Receipt Date: 20160906
  Transmission Date: 20161109
  Serious: Yes (Other)
  Sender: FDA-Public Use
  Company Number: RS-TEVA-687886ISR

PATIENT
  Age: 61 Year
  Sex: Female

DRUGS (3)
  1. OXALIPLATIN PLIVA [Suspect]
     Active Substance: OXALIPLATIN
     Indication: COLON CANCER
     Dosage: 85 MG/M2 DAILY;
     Route: 042
     Dates: start: 20160705, end: 20160726
  2. DEXASON [Concomitant]
     Active Substance: DEXAMETHASONE
     Indication: COLON CANCER
     Dosage: 12 MILLIGRAM DAILY;
     Route: 042
     Dates: start: 20160705, end: 20160726
  3. RANITIDIN [Concomitant]
     Active Substance: RANITIDINE HYDROCHLORIDE
     Indication: COLON CANCER
     Dosage: 50 MILLIGRAM DAILY;
     Route: 042
     Dates: start: 20160705, end: 20160726

REACTIONS (5)
  - Paraesthesia [Recovered/Resolved]
  - Tongue disorder [Recovered/Resolved]
  - Vomiting [Recovered/Resolved]
  - Nausea [Recovered/Resolved]
  - Defaecation urgency [Recovered/Resolved]

NARRATIVE: CASE EVENT DATE: 20160726
